FAERS Safety Report 7517486-6 (Version None)
Quarter: 2011Q2

REPORT INFORMATION
  Report Type: 
  Country: None (occurrence: None)
  Receive Date: 20110601
  Receipt Date: 20110524
  Transmission Date: 20111010
  Serious: Yes (Hospitalization)
  Sender: FDA-Public Use
  Company Number: US-AMGEN-USASP2011020236

PATIENT
  Age: 68 Year
  Sex: Female

DRUGS (2)
  1. METHOTREXATE [Concomitant]
  2. ENBREL [Suspect]
     Indication: RHEUMATOID ARTHRITIS
     Dosage: 25 MG, 2 TIMES/WK
     Dates: start: 20060501

REACTIONS (9)
  - SWOLLEN TEAR DUCT [None]
  - OCULAR HYPERAEMIA [None]
  - FATIGUE [None]
  - EYE SWELLING [None]
  - ALLERGIC COUGH [None]
  - BACTERIAL INFECTION [None]
  - EYE DISORDER [None]
  - FUNGAL INFECTION [None]
  - TINEA PEDIS [None]
